FAERS Safety Report 13834293 (Version 1)
Quarter: 2017Q3

REPORT INFORMATION
  Report Type: Spontaneous
  Country: US (occurrence: US)
  Receive Date: 20170804
  Receipt Date: 20170804
  Transmission Date: 20171127
  Serious: No
  Sender: FDA-Public Use
  Company Number: US-EDENBRIDGE PHARMACEUTICALS, LLC-US-2017EDE000062

PATIENT

DRUGS (2)
  1. IVERMECTIN. [Suspect]
     Active Substance: IVERMECTIN
     Indication: ACARODERMATITIS
     Dosage: 12 MG, QD
     Dates: start: 20170516, end: 20170516
  2. IVERMECTIN. [Suspect]
     Active Substance: IVERMECTIN
     Dosage: 12 MG, QD
     Dates: start: 20170523, end: 20170523

REACTIONS (1)
  - Abnormal faeces [Unknown]

NARRATIVE: CASE EVENT DATE: 20170526
